FAERS Safety Report 4694299-4 (Version None)
Quarter: 2005Q2

REPORT INFORMATION
  Report Type: 
  Country: None (occurrence: None)
  Receive Date: 20050620
  Receipt Date: 20030721
  Transmission Date: 20051028
  Serious: Yes (Death)
  Sender: FDA-Public Use
  Company Number: US-ABBOTT-03P-163-0225980-00

PATIENT
  Sex: Male
  Weight: 97.61 kg

DRUGS (1)
  1. HYDROCODONE BITARTRATE [Suspect]
     Dates: end: 20020801

REACTIONS (10)
  - ACUTE RESPIRATORY DISTRESS SYNDROME [None]
  - ANOXIC ENCEPHALOPATHY [None]
  - BRAIN OEDEMA [None]
  - CARDIOMEGALY [None]
  - COMPLETED SUICIDE [None]
  - DRUG LEVEL INCREASED [None]
  - DRUG TOXICITY [None]
  - OVERDOSE [None]
  - RIB FRACTURE [None]
  - SPLENOMEGALY [None]
